FAERS Safety Report 9393894 (Version 2)
Quarter: 2013Q3

REPORT INFORMATION
  Report Type: Spontaneous
  Country: GB (occurrence: GB)
  Receive Date: 20130710
  Receipt Date: 20130710
  Transmission Date: 20140515
  Serious: Yes (Death, Hospitalization)
  Sender: FDA-Public Use
  Company Number: GB-BAXTER-2013BAX022766

PATIENT
  Sex: Male
  Weight: 69.2 kg

DRUGS (6)
  1. DIANEAL PD4 [Suspect]
     Indication: RENAL FAILURE CHRONIC
     Route: 033
     Dates: start: 20100623, end: 20130531
  2. CLINDAMYCIN [Concomitant]
     Indication: PRODUCT USED FOR UNKNOWN INDICATION
     Route: 042
     Dates: start: 20130520, end: 20130530
  3. TAZOCIN [Concomitant]
     Indication: PRODUCT USED FOR UNKNOWN INDICATION
     Route: 042
     Dates: start: 20130521, end: 20130531
  4. METRONIDAZOLE [Concomitant]
     Indication: PRODUCT USED FOR UNKNOWN INDICATION
     Route: 042
     Dates: start: 20130521, end: 20130530
  5. OXYNORM [Concomitant]
     Indication: PRODUCT USED FOR UNKNOWN INDICATION
     Dosage: 2.5 - 5 MG
     Route: 048
     Dates: start: 20130522, end: 20130526
  6. TRAMADOL [Concomitant]
     Indication: PRODUCT USED FOR UNKNOWN INDICATION
     Route: 048
     Dates: start: 20130528, end: 20130528

REACTIONS (5)
  - Sepsis [Fatal]
  - Pneumonia [Fatal]
  - Blood glucose increased [Fatal]
  - Gangrene [Unknown]
  - Fluid overload [Unknown]
